FAERS Safety Report 11425061 (Version 1)
Quarter: 2015Q3

REPORT INFORMATION
  Report Type: Spontaneous
  Country: US (occurrence: US)
  Receive Date: 20150821
  Receipt Date: 20150821
  Transmission Date: 20151125
  Serious: No
  Sender: FDA-Public Use
  Company Number: US-ELI_LILLY_AND_COMPANY-US201103009015

PATIENT
  Sex: Female

DRUGS (3)
  1. HUMULIN R [Suspect]
     Active Substance: INSULIN HUMAN
  2. HUMULIN R [Suspect]
     Active Substance: INSULIN HUMAN
     Indication: TYPE 1 DIABETES MELLITUS
     Dosage: UNK, PRN
     Route: 058
     Dates: start: 2006
  3. HUMULIN R [Suspect]
     Active Substance: INSULIN HUMAN
     Dosage: 30 U, OTHER
     Route: 058
     Dates: start: 20110328, end: 20110328

REACTIONS (7)
  - Blood glucose increased [Unknown]
  - Feeling abnormal [Unknown]
  - Vision blurred [Unknown]
  - Tremor [Unknown]
  - Asthenia [Unknown]
  - Dizziness [Unknown]
  - Malaise [Unknown]
